FAERS Safety Report 25745970 (Version 1)
Quarter: 2025Q3

REPORT INFORMATION
  Report Type: Spontaneous
  Country: HN (occurrence: HN)
  Receive Date: 20250901
  Receipt Date: 20250901
  Transmission Date: 20251020
  Serious: Yes (Life-Threatening, Hospitalization, Disabling, Other)
  Sender: BRISTOL-MYERS SQUIBB COMPANY
  Company Number: HN-BRISTOL-MYERS SQUIBB COMPANY-2025-120196

PATIENT
  Age: 70 Year
  Sex: Female

DRUGS (4)
  1. OPDIVO [Suspect]
     Active Substance: NIVOLUMAB
     Indication: Lung neoplasm malignant
     Dosage: 240 MILLIGRAMS EVERY 2 WEEKS / 2.00 WEEKS
     Route: 042
     Dates: start: 202506
  2. CABOZANTINIB S-MALATE [Suspect]
     Active Substance: CABOZANTINIB S-MALATE
     Indication: Thyroid cancer
     Dosage: 60 MILLIGRAMS EVERY 1 DAYS / 1.00 DAYS
     Route: 048
     Dates: start: 20250426, end: 20250722
  3. CABOZANTINIB S-MALATE [Suspect]
     Active Substance: CABOZANTINIB S-MALATE
     Dosage: 60 MILLIGRAMS EVERY 1 DAYS / 1.00 DAYS
     Route: 048
     Dates: start: 20250825
  4. NEXAVAR [Concomitant]
     Active Substance: SORAFENIB
     Indication: Thyroid cancer

REACTIONS (6)
  - Somnolence [Unknown]
  - Burning sensation [Unknown]
  - Gastrointestinal disorder [Recovering/Resolving]
  - Palmar-plantar erythrodysaesthesia syndrome [Not Recovered/Not Resolved]
  - Hypertension [Recovering/Resolving]
  - Dry skin [Unknown]

NARRATIVE: CASE EVENT DATE: 20250701
